FAERS Safety Report 22068178 (Version 1)
Quarter: 2023Q1

REPORT INFORMATION
  Report Type: Report from Study
  Country: US (occurrence: US)
  Receive Date: 20230307
  Receipt Date: 20230307
  Transmission Date: 20230417
  Serious: Yes (Life-Threatening, Hospitalization)
  Sender: FDA-Public Use
  Company Number: US-ABBVIE-4206869

PATIENT
  Age: 71 Year
  Sex: Female
  Weight: 99.518 kg

DRUGS (3)
  1. VENETOCLAX [Suspect]
     Active Substance: VENETOCLAX
     Indication: Acute myeloid leukaemia
     Dosage: FIRST 14 DAYS OF EVERY CYCLE
     Route: 048
     Dates: start: 20220301
  2. AZACITIDINE [Concomitant]
     Active Substance: AZACITIDINE
     Indication: Acute myeloid leukaemia
     Dosage: FIRST 7 DAYS OF EVERY CYCLE
     Route: 058
     Dates: start: 20220301
  3. TTI-622 [Concomitant]
     Active Substance: TTI-622
     Indication: Acute myeloid leukaemia
     Route: 050
     Dates: start: 20220301

REACTIONS (2)
  - Platelet count decreased [Not Recovered/Not Resolved]
  - Febrile neutropenia [Not Recovered/Not Resolved]

NARRATIVE: CASE EVENT DATE: 20221111
